FAERS Safety Report 7536680-1 (Version None)
Quarter: 2011Q2

REPORT INFORMATION
  Report Type: 
  Country: None (occurrence: None)
  Receive Date: 20110609
  Receipt Date: 20110531
  Transmission Date: 20111010
  Serious: Yes (Hospitalization)
  Sender: FDA-Public Use
  Company Number: A0929776A

PATIENT
  Sex: Male
  Weight: 56.8 kg

DRUGS (3)
  1. ATROVENT [Suspect]
     Dosage: 3PUFF THREE TIMES PER DAY
     Route: 065
  2. ADVAIR DISKUS 100/50 [Suspect]
     Indication: BRONCHIECTASIS
     Dosage: 2PUFF TWICE PER DAY
     Route: 055
     Dates: start: 19990101
  3. ALBUTEROL [Suspect]
     Dosage: 2PUFF SEE DOSAGE TEXT
     Route: 065

REACTIONS (1)
  - PNEUMONIA [None]
